FAERS Safety Report 11748764 (Version 1)
Quarter: 2015Q4

REPORT INFORMATION
  Report Type: Spontaneous
  Country: US (occurrence: US)
  Receive Date: 20151118
  Receipt Date: 20151118
  Transmission Date: 20160304
  Serious: Yes (Death)
  Sender: FDA-Public Use
  Company Number: US-JNJFOC-20151107620

PATIENT
  Age: 1 Year
  Sex: Male

DRUGS (6)
  1. MMR VACCIN [Suspect]
     Active Substance: MEASLES-MUMPS-RUBELLA VIRUS VACCINE
     Indication: IMMUNISATION
     Route: 065
     Dates: start: 20151019, end: 20151019
  2. TYLENOL [Suspect]
     Active Substance: ACETAMINOPHEN
     Indication: PYREXIA
     Route: 048
     Dates: start: 20151022, end: 20151022
  3. QUADRILIN [Suspect]
     Active Substance: DIPHTHERIA AND TETANUS TOXOIDS AND ACELLULAR PERTUSSIS ADSORBED AND INACTIVATED POLIOVIRUS VACCINE
     Indication: IMMUNISATION
     Route: 030
     Dates: start: 20151019, end: 20151019
  4. TYLENOL [Suspect]
     Active Substance: ACETAMINOPHEN
     Route: 048
  5. HEPATITIS A VACCINE [Suspect]
     Active Substance: HEPATITIS A VIRUS STRAIN HM175 ANTIGEN (FORMALDEHYDE INACTIVATED)
     Indication: IMMUNISATION
     Route: 065
     Dates: start: 20151019, end: 20151019
  6. VARICELLA VACCINE [Suspect]
     Active Substance: VARICELLA-ZOSTER VIRUS STRAIN OKA/MERCK LIVE ANTIGEN
     Indication: IMMUNISATION
     Route: 065
     Dates: start: 20151019, end: 20151019

REACTIONS (1)
  - Death [Fatal]

NARRATIVE: CASE EVENT DATE: 20151023
